FAERS Safety Report 15296044 (Version 2)
Quarter: 2018Q4

REPORT INFORMATION
  Report Type: Spontaneous
  Country: GB (occurrence: GB)
  Receive Date: 20180820
  Receipt Date: 20181219
  Transmission Date: 20190204
  Serious: No
  Sender: FDA-Public Use
  Company Number: GB-ROCHE-2171914

PATIENT
  Sex: Female

DRUGS (2)
  1. RIBAVIRIN. [Suspect]
     Active Substance: RIBAVIRIN
     Indication: HEPATITIS
     Dosage: LAST DOSE IN 2017
     Route: 048
     Dates: start: 2017
  2. ZEPATIER [Suspect]
     Active Substance: ELBASVIR\GRAZOPREVIR
     Indication: HEPATITIS
     Dosage: UNK
     Route: 048
     Dates: start: 2017

REACTIONS (2)
  - Haemoglobin decreased [Unknown]
  - Pallor [Unknown]

NARRATIVE: CASE EVENT DATE: 2017
